FAERS Safety Report 5420697-7 (Version None)
Quarter: 2007Q3

REPORT INFORMATION
  Report Type: 
  Country: None (occurrence: None)
  Receive Date: 20070816
  Receipt Date: 20070730
  Transmission Date: 20080115
  Serious: Yes (Other)
  Sender: FDA-Public Use
  Company Number: 8025860

PATIENT
  Sex: Female

DRUGS (2)
  1. LEVETIRACETAM [Suspect]
     Indication: EPILEPSY
     Dosage: 3000 MG/ D
  2. LAMOTRIGINE [Concomitant]

REACTIONS (4)
  - ANTICONVULSANT DRUG LEVEL DECREASED [None]
  - CAESAREAN SECTION [None]
  - COMPLEX PARTIAL SEIZURES [None]
  - DRUG EXPOSURE DURING PREGNANCY [None]
